FAERS Safety Report 9458706 (Version 1)
Quarter: 2013Q3

REPORT INFORMATION
  Report Type: Spontaneous
  Country: US (occurrence: US)
  Receive Date: 20130814
  Receipt Date: 20130814
  Transmission Date: 20140515
  Serious: No
  Sender: FDA-Public Use
  Company Number: US-BAYER-2013-098426

PATIENT
  Age: 71 Year
  Sex: Male
  Weight: 73 kg

DRUGS (2)
  1. ALEVE TABLET [Suspect]
     Indication: ARTHRALGIA
     Dosage: 1 DF, QD
     Route: 048
     Dates: start: 20130812
  2. ALEVE TABLET [Suspect]
     Indication: ARTHRALGIA

REACTIONS (1)
  - Headache [Not Recovered/Not Resolved]
